FAERS Safety Report 10688102 (Version 4)
Quarter: 2015Q1

REPORT INFORMATION
  Report Type: Report from Study
  Country: AU (occurrence: AU)
  Receive Date: 20150102
  Receipt Date: 20150123
  Transmission Date: 20150720
  Serious: Yes (Hospitalization, Other)
  Sender: FDA-Public Use
  Company Number: PHHY2014AU148721

PATIENT
  Age: 52 Year
  Sex: Male

DRUGS (4)
  1. RIBAVIRIN. [Suspect]
     Active Substance: RIBAVIRIN
     Indication: HEPATITIS C
     Dosage: UNK
     Route: 048
     Dates: start: 20141205
  2. CLOZARIL [Interacting]
     Active Substance: CLOZAPINE
     Dosage: 200 MG, BID
     Route: 048
  3. SOFOSBUVIR [Interacting]
     Active Substance: SOFOSBUVIR
     Indication: HEPATITIS C
     Dosage: UNK
     Route: 065
     Dates: start: 20141205
  4. CLOZARIL [Suspect]
     Active Substance: CLOZAPINE
     Indication: SCHIZOPHRENIA
     Dosage: 600 (UNIT UNSPECIFIED)
     Route: 048
     Dates: start: 19930903

REACTIONS (12)
  - Bone marrow failure [Unknown]
  - Neutropenia [Recovered/Resolved]
  - Oedema [Unknown]
  - Blood count abnormal [Recovering/Resolving]
  - Drug interaction [Unknown]
  - Malaise [Unknown]
  - Hepatitis C [Unknown]
  - Renal failure [Recovering/Resolving]
  - Cytopenia [Unknown]
  - White blood cell count decreased [Recovered/Resolved]
  - Anaemia [Unknown]
  - Lethargy [Unknown]

NARRATIVE: CASE EVENT DATE: 20141215
